FAERS Safety Report 7993590-3 (Version None)
Quarter: 2011Q4

REPORT INFORMATION
  Report Type: 
  Country: None (occurrence: None)
  Receive Date: 20111219
  Receipt Date: 20111215
  Transmission Date: 20120403
  Serious: Yes (Hospitalization)
  Sender: FDA-Public Use
  Company Number: US-MERCK-1106USA03849

PATIENT
  Age: 66 Year
  Sex: Female
  Weight: 81 kg

DRUGS (2)
  1. FOSAMAX [Suspect]
     Indication: OSTEOPOROSIS
     Route: 048
     Dates: start: 20000101, end: 20040101
  2. SYNTHROID [Concomitant]
     Route: 065
     Dates: start: 19810101

REACTIONS (18)
  - ARTHRALGIA [None]
  - INTERVERTEBRAL DISC DEGENERATION [None]
  - OBESITY [None]
  - BLOOD PRESSURE INCREASED [None]
  - FEMUR FRACTURE [None]
  - SPONDYLITIS [None]
  - URINARY TRACT INFECTION [None]
  - THROMBOCYTOPENIA [None]
  - PALPITATIONS [None]
  - HYPERLIPIDAEMIA [None]
  - NECK INJURY [None]
  - HYPOTHYROIDISM [None]
  - OSTEOARTHRITIS [None]
  - ANAEMIA POSTOPERATIVE [None]
  - TOOTH DISORDER [None]
  - HAEMATURIA [None]
  - HORDEOLUM [None]
  - GINGIVAL DISORDER [None]
